FAERS Safety Report 6410997-6 (Version None)
Quarter: 2009Q4

REPORT INFORMATION
  Report Type: 
  Country: None (occurrence: None)
  Receive Date: 20091022
  Receipt Date: 20091019
  Transmission Date: 20100525
  Serious: Yes (Other)
  Sender: FDA-Public Use
  Company Number: US-GENENTECH-292683

PATIENT
  Sex: Female
  Weight: 68.027 kg

DRUGS (1)
  1. HERCEPTIN [Suspect]
     Indication: DRUG USE FOR UNKNOWN INDICATION
     Dosage: UNK

REACTIONS (4)
  - GLOMERULONEPHROPATHY [None]
  - NEPHROTIC SYNDROME [None]
  - SYSTEMIC LUPUS ERYTHEMATOSUS [None]
  - THERAPEUTIC RESPONSE DECREASED [None]
